FAERS Safety Report 13852111 (Version 1)
Quarter: 2017Q3

REPORT INFORMATION
  Report Type: Other
  Country: GB (occurrence: GB)
  Receive Date: 20170809
  Receipt Date: 20170809
  Transmission Date: 20171127
  Serious: Yes (Other)
  Sender: FDA-Public Use
  Company Number: GB-COVIS PHARMA B.V.-2017COV00189

PATIENT
  Age: 10 Year
  Sex: Female

DRUGS (6)
  1. OMEPRAZOLE MAGNESIUM. [Suspect]
     Active Substance: OMEPRAZOLE MAGNESIUM
     Route: 048
  2. DOMPERIDONE [Concomitant]
     Active Substance: DOMPERIDONE
  3. METHYLPHENIDATE HYDROCHLORIDE. [Concomitant]
     Active Substance: METHYLPHENIDATE HYDROCHLORIDE
  4. NITROFURANTOIN. [Concomitant]
     Active Substance: NITROFURANTOIN
  5. FLUOXETINE [Concomitant]
     Active Substance: FLUOXETINE HYDROCHLORIDE
  6. FLUMIST QUADRIVALENT [Suspect]
     Active Substance: INFLUENZA A VIRUS A/CALIFORNIA/7/2009 (H1N1) LIVE(ATTENUATED) ANTIGEN\INFLUENZA A VIRUS A/TEXAS/50/2012 (H3N2) LIVE (ATTENUATED) ANTIGEN\INFLUENZA B VIRUS B/BRISBANE/60/2008 LIVE(ATTENUATED) ANTIGEN\INFLUENZA B VIRUS B/MASSACHUSETTS/2/2012 LIVE (ATTENUATED) ANTIGEN
     Indication: INFLUENZA IMMUNISATION
     Dosage: UNK
     Route: 045
     Dates: start: 20141111, end: 20141111

REACTIONS (3)
  - Narcolepsy [Not Recovered/Not Resolved]
  - Cataplexy [Not Recovered/Not Resolved]
  - Headache [Not Recovered/Not Resolved]

NARRATIVE: CASE EVENT DATE: 20141111
